FAERS Safety Report 9099154 (Version 1)
Quarter: 2013Q1

REPORT INFORMATION
  Report Type: Spontaneous
  Country: CA (occurrence: CA)
  Receive Date: 20130213
  Receipt Date: 20130213
  Transmission Date: 20140127
  Serious: Yes (Other)
  Sender: FDA-Public Use
  Company Number: CA-ELI_LILLY_AND_COMPANY-CA201302001937

PATIENT
  Age: 82 Year
  Sex: Female

DRUGS (14)
  1. FORTEO [Suspect]
     Indication: OSTEOPOROSIS
     Dosage: 20 UG, QD
     Route: 058
     Dates: start: 20120604
  2. FERROUS SULFATE [Concomitant]
  3. FUROSEMIDE [Concomitant]
  4. SYNTHROID [Concomitant]
  5. AMLODIPINE [Concomitant]
  6. BIOCAL-D [Concomitant]
  7. PANTOPRAZOLE [Concomitant]
  8. ATENOLOL [Concomitant]
  9. CRESTOR [Concomitant]
  10. ACETAMINOPHEN [Concomitant]
  11. COUMADIN [Concomitant]
  12. APO-HYDROXYZINE [Concomitant]
  13. OXAZEPAM [Concomitant]
  14. ADVAIR [Concomitant]

REACTIONS (1)
  - Pleural effusion [Not Recovered/Not Resolved]
